FAERS Safety Report 23195959 (Version 7)
Quarter: 2025Q4

REPORT INFORMATION
  Report Type: Spontaneous
  Country: EU (occurrence: EU)
  Receive Date: 20231117
  Receipt Date: 20251010
  Transmission Date: 20260118
  Serious: Yes (Other)
  Sender: TEVA
  Company Number: EU-BAXTER-2023BAX032994

PATIENT
  Sex: Male

DRUGS (15)
  1. LENALIDOMIDE [Suspect]
     Active Substance: LENALIDOMIDE
     Indication: Chronic lymphocytic leukaemia
     Dosage: DOSAGE TEXT: UNK,THERAPY START AND END DATE:ASKU
     Route: 065
  2. CYCLOPHOSPHAMIDE [Suspect]
     Active Substance: CYCLOPHOSPHAMIDE
     Indication: Richter^s syndrome
     Dosage: FIRST LINE THERAPY
     Route: 065
     Dates: start: 2013
  3. CYCLOPHOSPHAMIDE [Suspect]
     Active Substance: CYCLOPHOSPHAMIDE
     Indication: Richter^s syndrome
     Dosage: DOSAGE TEXT: UNK,
     Route: 065
     Dates: start: 202210
  4. BENDAMUSTINE [Suspect]
     Active Substance: BENDAMUSTINE
     Indication: Chronic lymphocytic leukaemia
     Dosage: 2 CYCLES
     Route: 042
     Dates: start: 201707
  5. VINCRISTINE [Suspect]
     Active Substance: VINCRISTINE
     Indication: Richter^s syndrome
     Dosage: DOSAGE TEXT: UNK, THERAPY START AND END DATE:ASKU
     Route: 065
     Dates: start: 202210
  6. VENETOCLAX [Suspect]
     Active Substance: VENETOCLAX
     Indication: Chronic lymphocytic leukaemia
     Dosage: DOSAGE TEXT: UNK, THERAPY START AND END DATE: ASKU
     Route: 048
     Dates: start: 2017
  7. FLUDARABINE [Suspect]
     Active Substance: FLUDARABINE PHOSPHATE
     Indication: Chronic lymphocytic leukaemia
     Dosage: DOSAGE TEXT: UNK, FIRST LINE THERAPY THERAPY START AND END DATE:ASKU
     Route: 065
     Dates: start: 2013
  8. PREDNISOLONE [Suspect]
     Active Substance: PREDNISOLONE
     Indication: Richter^s syndrome
     Dosage: DOSAGE TEXT: UNK,THERAPY START AND END DATE:ASKU
     Route: 065
     Dates: start: 202210
  9. RITUXIMAB [Suspect]
     Active Substance: RITUXIMAB
     Indication: Richter^s syndrome
     Dosage: DOSAGE TEXT: UNK,  FIRST LINE THERAPY
     Route: 065
     Dates: start: 202210
  10. RITUXIMAB [Suspect]
     Active Substance: RITUXIMAB
     Indication: Richter^s syndrome
     Dosage: DOSAGE TEXT: UNK, THERAPY START AND END DATE:ASKU
     Route: 065
     Dates: start: 2013
  11. BRUKINSA [Suspect]
     Active Substance: ZANUBRUTINIB
     Indication: Leukaemia recurrent
     Dosage: UNK, (START DATE: FEB-2022)
     Route: 065
     Dates: start: 202202
  12. IBRUTINIB [Suspect]
     Active Substance: IBRUTINIB
     Indication: Chronic lymphocytic leukaemia
     Dosage: DOSAGE TEXT: UNK,THERAPY END DATE:ASKU
     Route: 048
     Dates: start: 20171012
  13. DOXORUBICIN [Suspect]
     Active Substance: DOXORUBICIN
     Indication: Richter^s syndrome
     Dosage: DOSAGE TEXT: UNK, (START DATE: OCT-2022)
     Route: 065
     Dates: start: 202210
  14. TEVIMBRA [Suspect]
     Active Substance: TISLELIZUMAB-JSGR
     Indication: Leukaemia recurrent
     Dosage: DOSAGE TEXT: UNK, THERAPY START AND END DATE:ASKU
     Route: 065
     Dates: start: 202202
  15. IMBRUVICA [Suspect]
     Active Substance: IBRUTINIB
     Indication: Chronic lymphocytic leukaemia
     Route: 048
     Dates: start: 20171012

REACTIONS (5)
  - Richter^s syndrome [Unknown]
  - Thrombocytopenia [Unknown]
  - Disease progression [Unknown]
  - Lymphadenopathy [Unknown]
  - Anaemia [Unknown]
